FAERS Safety Report 8212129-0 (Version None)
Quarter: 2012Q1

REPORT INFORMATION
  Report Type: 
  Country: None (occurrence: None)
  Receive Date: 20120315
  Receipt Date: 20120302
  Transmission Date: 20120608
  Serious: Yes (Death, Hospitalization, Other)
  Sender: FDA-Public Use
  Company Number: DE-ROCHE-1017076

PATIENT
  Sex: Male
  Weight: 94 kg

DRUGS (15)
  1. LEUCOVORIN CALCIUM [Suspect]
     Dosage: LAST DOSE PRIOR TO SAE: 22 NOV 2011
     Dates: start: 20111001, end: 20111122
  2. FLUOROURACIL [Suspect]
     Dosage: TEMPORARILY INTERRUPTED
     Dates: start: 20111001, end: 20111122
  3. PREDNISOLONE [Concomitant]
  4. PANTOPRAZOLE [Concomitant]
  5. LEUCOVORIN CALCIUM [Suspect]
     Indication: COLORECTAL CANCER METASTATIC
     Route: 042
     Dates: start: 20110801, end: 20110901
  6. OXALIPLATIN [Suspect]
     Indication: COLORECTAL CANCER METASTATIC
     Dosage: LAST DOSE PRIOR TO SAE 22/NOV/2011
     Route: 042
     Dates: start: 20110801, end: 20110901
  7. ENOXAPARIN SODIUM [Concomitant]
     Indication: THROMBOSIS PROPHYLAXIS
     Route: 058
     Dates: start: 20111123, end: 20111210
  8. ACETYLCYSTEINE [Concomitant]
  9. AVASTIN [Suspect]
     Indication: COLORECTAL CANCER METASTATIC
     Dosage: LAST DOSE PRIOR TO SAE 22/NOV/2011, TEMPORARILY INTERRUPTED
     Route: 065
     Dates: start: 20110901, end: 20111122
  10. ALLOPURINOL [Concomitant]
     Indication: HYPERURICAEMIA
     Route: 048
  11. OXALIPLATIN [Suspect]
     Dosage: TEMPORARILY INTERRUPTED
     Route: 042
     Dates: start: 20111001, end: 20111122
  12. FLUOROURACIL [Suspect]
     Indication: COLORECTAL CANCER METASTATIC
     Dosage: LAST DOSE PRIOR TO SAE 22/NOV/2011
     Route: 042
     Dates: start: 20110801, end: 20110901
  13. AMARYL [Concomitant]
     Indication: DIABETES MELLITUS
     Route: 048
  14. FINASTERID [Concomitant]
     Indication: BENIGN PROSTATIC HYPERPLASIA
     Route: 048
  15. ARMODAFINIL [Concomitant]

REACTIONS (9)
  - PNEUMONIA [None]
  - GENERAL PHYSICAL HEALTH DETERIORATION [None]
  - DISEASE PROGRESSION [None]
  - EMPHYSEMA [None]
  - CEREBROVASCULAR ACCIDENT [None]
  - SEPSIS [None]
  - PNEUMOTHORAX [None]
  - SUBCUTANEOUS EMPHYSEMA [None]
  - SEPTIC EMBOLUS [None]
